FAERS Safety Report 11999965 (Version 4)
Quarter: 2016Q1

REPORT INFORMATION
  Report Type: Spontaneous
  Country: JP (occurrence: JP)
  Receive Date: 20160204
  Receipt Date: 20160323
  Transmission Date: 20160526
  Serious: Yes (Death, Life-Threatening, Hospitalization, Other)
  Sender: FDA-Public Use
  Company Number: PHJP2016JP002166

PATIENT
  Age: 73 Year
  Sex: Female
  Weight: 51 kg

DRUGS (5)
  1. FUROSEMIDE. [Concomitant]
     Active Substance: FUROSEMIDE
     Indication: OEDEMA
     Dosage: 20 MG, UNK
     Route: 048
     Dates: start: 20151225, end: 20160131
  2. LANSOPRAZOLE. [Concomitant]
     Active Substance: LANSOPRAZOLE
     Indication: ABDOMINAL PAIN UPPER
     Dosage: 15 MG, QD
     Route: 048
     Dates: start: 201509, end: 20160131
  3. SUTENT [Suspect]
     Active Substance: SUNITINIB MALATE
     Indication: RENAL CANCER
     Dosage: 37.5 MG, QD
     Route: 048
     Dates: start: 20150621, end: 20160103
  4. AFINITOR [Suspect]
     Active Substance: EVEROLIMUS
     Indication: RENAL CELL CARCINOMA
     Dosage: 7.5 MG, QD
     Route: 048
     Dates: start: 20160104, end: 20160131
  5. DOMPERIDONE [Concomitant]
     Active Substance: DOMPERIDONE
     Indication: NAUSEA
     Dosage: 5 MG, TID
     Route: 048
     Dates: start: 20150923, end: 20160131

REACTIONS (6)
  - Headache [Fatal]
  - Loss of consciousness [Fatal]
  - Aneurysm ruptured [Unknown]
  - Stertor [Fatal]
  - Subarachnoid haemorrhage [Fatal]
  - Haematuria [Recovered/Resolved]

NARRATIVE: CASE EVENT DATE: 20160126
